FAERS Safety Report 11402888 (Version 1)
Quarter: 2015Q3

REPORT INFORMATION
  Report Type: Spontaneous
  Country: US (occurrence: US)
  Receive Date: 20150821
  Receipt Date: 20150821
  Transmission Date: 20151125
  Serious: No
  Sender: FDA-Public Use
  Company Number: US-ROCHE-1259048

PATIENT
  Sex: Female

DRUGS (4)
  1. MELATONIN [Concomitant]
     Active Substance: MELATONIN
  2. RIBAVIRIN. [Suspect]
     Active Substance: RIBAVIRIN
     Indication: CHRONIC HEPATITIS C
     Dosage: DIVIDED DOSES, 400/400
     Route: 048
     Dates: start: 20130524
  3. ZOLOFT [Concomitant]
     Active Substance: SERTRALINE HYDROCHLORIDE
     Indication: IRRITABILITY
  4. PEGASYS [Suspect]
     Active Substance: PEGINTERFERON ALFA-2A
     Indication: CHRONIC HEPATITIS C
     Dosage: PROCLICK
     Route: 058
     Dates: start: 20130524

REACTIONS (20)
  - Osteopenia [Unknown]
  - Fatigue [Unknown]
  - White blood cell count decreased [Unknown]
  - Drug dose omission [Unknown]
  - Irritability [Unknown]
  - Chest discomfort [Unknown]
  - Influenza like illness [Unknown]
  - Tremor [Unknown]
  - Postmenopausal haemorrhage [Unknown]
  - Pruritus [Unknown]
  - Platelet count abnormal [Unknown]
  - Immunodeficiency [Unknown]
  - Contusion [Unknown]
  - Anxiety [Unknown]
  - Urinary tract infection [Unknown]
  - Nausea [Unknown]
  - Diarrhoea [Unknown]
  - Memory impairment [Unknown]
  - Disturbance in attention [Unknown]
  - Oropharyngeal pain [Unknown]
